FAERS Safety Report 7476207 (Version 3)
Quarter: 2013Q3

REPORT INFORMATION
  Report Type: Spontaneous
  Country: US (occurrence: US)
  Receive Date: 20100715
  Receipt Date: 20130920
  Transmission Date: 20140515
  Serious: Yes (Hospitalization, Other)
  Sender: FDA-Public Use
  Company Number: US-AMGEN-KDL422784

PATIENT
  Age: 78 Year
  Sex: Female

DRUGS (1)
  1. ENBREL [Suspect]
     Indication: PSORIASIS
     Dosage: 50 MG, QWK
     Route: 058
     Dates: start: 20030901

REACTIONS (12)
  - Cerebrovascular accident [Recovered/Resolved]
  - Gangrene [Recovered/Resolved]
  - Hemiplegia [Not Recovered/Not Resolved]
  - Lung infection [Recovered/Resolved]
  - Cardiac failure congestive [Recovered/Resolved]
  - Staphylococcal infection [Unknown]
  - Incontinence [Unknown]
  - Drug effect incomplete [Not Recovered/Not Resolved]
  - Inappropriate schedule of drug administration [Not Recovered/Not Resolved]
  - Psoriasis [Not Recovered/Not Resolved]
  - Injection site pain [Not Recovered/Not Resolved]
  - Urinary tract infection [Unknown]
